FAERS Safety Report 9154354 (Version 1)
Quarter: 2013Q1

REPORT INFORMATION
  Report Type: Spontaneous
  Country: GB (occurrence: None)
  Receive Date: 20130207
  Receipt Date: 20130207
  Transmission Date: 20140127
  Serious: Yes (Hospitalization)
  Sender: FDA-Public Use
  Company Number: DKLU1088621

PATIENT
  Age: 5 Year
  Sex: Male
  Weight: 15.4 kg

DRUGS (7)
  1. COSMEGEN [Suspect]
     Indication: NEOPLASM MALIGNANT
     Dosage: 1 MG MILLIGRAM (S), 1 IN 1 CYCLICAL, INTRAVENOUS (NOT OTHERWISE SPECIFIED)
     Dates: start: 20120720
  2. IFOSFAMIDE [Suspect]
     Dosage: 2 G GRAM (S), CYCLICAL, INTRAVENOUS (NOT OTHERWISE SPECIFIED)
     Route: 042
     Dates: start: 20120720
  3. VINCRISTINE SULFATE [Suspect]
     Dosage: 1 MG MILLIGRAM (S), 1 IN 1 WK, INTRAVENOUS (NOT OTHERWISE SPECIFIED)
     Dates: start: 20120720
  4. METOCLOPRAMIDE (METOCLOPRAMIDE) [Concomitant]
  5. ONDANSETRON (ONDANSETRON) [Concomitant]
  6. PARACETAMOL (PARACETAMOL) [Concomitant]
  7. SEPTRIN (BACTRIM) [Concomitant]

REACTIONS (2)
  - Vomiting [None]
  - Haematuria [None]
